FAERS Safety Report 21621155 (Version 1)
Quarter: 2022Q4

REPORT INFORMATION
  Report Type: Report from Study
  Country: JP (occurrence: JP)
  Receive Date: 20221121
  Receipt Date: 20221121
  Transmission Date: 20230113
  Serious: Yes (Hospitalization, Other)
  Sender: FDA-Public Use
  Company Number: JP-BRISTOL-MYERS SQUIBB COMPANY-2022-139710

PATIENT
  Age: 75 Year
  Sex: Female

DRUGS (21)
  1. AZACITIDINE [Suspect]
     Active Substance: AZACITIDINE
     Indication: Myelodysplastic syndrome
     Dosage: 25 MG/M^2 7 DAYS WITHIN THE FIRST 9 CALENDAR DAYS OF EACH 28-DAY CYCLE, EVERY 1 DAYS
     Route: 042
     Dates: start: 20220311
  2. BISOPROLOL FUMARATE [Concomitant]
     Active Substance: BISOPROLOL FUMARATE
     Indication: Hypertension
     Route: 065
     Dates: start: 2004
  3. ATORVASTATIN CALCIUM TRIHYDRATE [Concomitant]
     Active Substance: ATORVASTATIN CALCIUM TRIHYDRATE
     Indication: Hyperlipidaemia
     Route: 065
     Dates: start: 2012
  4. VONOPRAZAN FUMARATE [Concomitant]
     Active Substance: VONOPRAZAN FUMARATE
     Indication: Gastrooesophageal reflux disease
     Route: 065
     Dates: start: 2020
  5. KETOPROFEN [Concomitant]
     Active Substance: KETOPROFEN
     Indication: Periarthritis
     Dosage: AS NECESSARY
     Route: 065
     Dates: start: 2012
  6. SODIUM HYALURONATE [Concomitant]
     Active Substance: HYALURONATE SODIUM
     Indication: Dry eye
     Dosage: PROPER QUANTITY (DROPS), 4/DAYS
     Route: 065
     Dates: start: 2004
  7. HEPARINOID [Concomitant]
     Indication: Dry skin prophylaxis
     Dosage: PROPER QUANTITY APPLICATION, AS NECESSARY
     Route: 065
     Dates: start: 2020
  8. BISOPROLOL FUMARATE [Concomitant]
     Active Substance: BISOPROLOL FUMARATE
     Indication: Hypertension
     Route: 065
     Dates: start: 2004
  9. KETOPROFEN [Concomitant]
     Active Substance: KETOPROFEN
     Indication: Periarthritis
     Dosage: PROPER QUANTITY, 4/DAYS
     Route: 065
     Dates: start: 2012
  10. FLUCONAZOLE [Concomitant]
     Active Substance: FLUCONAZOLE
     Indication: Infection prophylaxis
     Route: 065
     Dates: start: 20220310
  11. AZULENE GLUTAMINE COMBINATION EMEC [Concomitant]
     Indication: Infection prophylaxis
     Dosage: PROPER QUANTITY, AS NECESSARY
     Route: 065
     Dates: start: 20220311
  12. GLYCOSAMINOGLYCANS [Concomitant]
     Active Substance: GLYCOSAMINOGLYCANS
     Indication: Dry skin prophylaxis
     Dosage: PROPER QUANTITY, AS NECESSARY
     Route: 065
     Dates: start: 20220322
  13. GLYCOSAMINOGLYCANS [Concomitant]
     Active Substance: GLYCOSAMINOGLYCANS
     Dosage: PROPER QUANTITY, AS NECESSARY
     Route: 065
     Dates: start: 20220313
  14. BETAMETHASONE DIPROPIONATE [Concomitant]
     Active Substance: BETAMETHASONE DIPROPIONATE
     Indication: Eczema
     Dosage: PROPER QUANTITY, AS NECESSARY
     Route: 065
     Dates: start: 20220322
  15. LUNESTA [Concomitant]
     Active Substance: ESZOPICLONE
     Indication: Insomnia
     Dosage: AS NECESSARY
     Route: 065
     Dates: start: 20220326
  16. GENTAMICIN SULFATE [Concomitant]
     Active Substance: GENTAMICIN SULFATE
     Indication: Skin infection
     Dosage: PROPER QUANTITY, AS NECESSARY
     Route: 065
     Dates: start: 20220502
  17. CLOBETASOL [Concomitant]
     Active Substance: CLOBETASOL
     Indication: Skin infection
     Dosage: PROPER QUANTITY, AS NECESSARY
     Route: 065
     Dates: start: 20220506
  18. LEVOFLOXACIN [Concomitant]
     Active Substance: LEVOFLOXACIN
     Indication: Skin infection
     Route: 065
     Dates: start: 20220507
  19. SPAL [Concomitant]
     Indication: Infection prophylaxis
     Dosage: AS NECESSARY
     Route: 065
     Dates: start: 20221023
  20. ACETAMINOPHEN [Concomitant]
     Active Substance: ACETAMINOPHEN
     Indication: Febrile neutropenia
     Dosage: AS NECESSARY
     Route: 065
     Dates: start: 20221107, end: 20221107
  21. ACETAMINOPHEN [Concomitant]
     Active Substance: ACETAMINOPHEN
     Dosage: AS NECESSARY
     Route: 065
     Dates: start: 20220720, end: 20220720

REACTIONS (1)
  - Renal abscess [Not Recovered/Not Resolved]

NARRATIVE: CASE EVENT DATE: 20221111
